FAERS Safety Report 7268289-1 (Version None)
Quarter: 2011Q1

REPORT INFORMATION
  Report Type: 
  Country: None (occurrence: None)
  Receive Date: 20110201
  Receipt Date: 20110127
  Transmission Date: 20110831
  Serious: Yes (Disabling, Other)
  Sender: FDA-Public Use
  Company Number: US-ABBOTT-11P-163-0701381-00

PATIENT
  Sex: Male
  Weight: 90.8 kg

DRUGS (5)
  1. SYNTHROID [Suspect]
     Indication: HYPOPITUITARISM
     Dosage: DAILY DOSE: 88 MCG
     Dates: start: 20090901
  2. SYNTHROID [Suspect]
     Dates: start: 20101201
  3. SYNTHROID [Suspect]
     Indication: HYPOPITUITARISM
     Dates: start: 19990101
  4. SYNTHROID [Suspect]
     Indication: HYPOPITUITARISM
  5. SYNTHROID [Suspect]
     Indication: HYPOPITUITARISM
     Dosage: DAILY DOSE: 112 MCG

REACTIONS (6)
  - BRAIN INJURY [None]
  - NERVOUSNESS [None]
  - PARTIAL SEIZURES [None]
  - PSYCHOMOTOR HYPERACTIVITY [None]
  - BRAIN NEOPLASM [None]
  - AGITATION [None]
